FAERS Safety Report 13887187 (Version 1)
Quarter: 2017Q3

REPORT INFORMATION
  Report Type: Spontaneous
  Country: US (occurrence: US)
  Receive Date: 20170821
  Receipt Date: 20170821
  Transmission Date: 20171127
  Serious: No
  Sender: FDA-Public Use
  Company Number: US-ROCHE-713768

PATIENT
  Age: 90 Year
  Sex: Female
  Weight: 72.1 kg

DRUGS (11)
  1. ACTEMRA [Suspect]
     Active Substance: TOCILIZUMAB
     Indication: RHEUMATOID ARTHRITIS
     Dosage: FORM: INFUSION, DOSE REPORTED AS: 4
     Route: 042
     Dates: start: 20100419, end: 20100419
  2. DIFLUCAN [Concomitant]
     Active Substance: FLUCONAZOLE
     Route: 065
  3. VICODIN [Concomitant]
     Active Substance: ACETAMINOPHEN\HYDROCODONE BITARTRATE
     Route: 065
  4. METHOTREXATE. [Concomitant]
     Active Substance: METHOTREXATE
     Route: 065
  5. MOBIC [Concomitant]
     Active Substance: MELOXICAM
     Route: 065
  6. ACTEMRA [Suspect]
     Active Substance: TOCILIZUMAB
     Dosage: DOSE REPORTED AS 4
     Route: 042
     Dates: start: 20100519, end: 20100519
  7. ACTEMRA [Suspect]
     Active Substance: TOCILIZUMAB
     Dosage: DOSE REPORTED AS: 4
     Route: 042
  8. DARVOCET [Concomitant]
     Active Substance: ACETAMINOPHEN\PROPOXYPHENE HYDROCHLORIDE
     Route: 065
  9. NAPROSYN [Concomitant]
     Active Substance: NAPROXEN
     Route: 065
  10. FOLIC ACID. [Concomitant]
     Active Substance: FOLIC ACID
     Route: 065
  11. SONATA [Concomitant]
     Active Substance: ZALEPLON
     Indication: ANXIETY
     Route: 065

REACTIONS (4)
  - Facial pain [Recovered/Resolved]
  - Back pain [Recovered/Resolved]
  - Diarrhoea [Recovered/Resolved]
  - Arthralgia [Recovered/Resolved]

NARRATIVE: CASE EVENT DATE: 20100420
